FAERS Safety Report 5844429-3 (Version None)
Quarter: 2008Q3

REPORT INFORMATION
  Report Type: 
  Country: None (occurrence: None)
  Receive Date: 20080811
  Receipt Date: 20060315
  Transmission Date: 20090109
  Serious: Yes (Hospitalization)
  Sender: FDA-Public Use
  Company Number: WAES 0603SGP00009

PATIENT
  Age: 69 Year
  Sex: Female

DRUGS (8)
  1. VYTORIN [Suspect]
     Indication: HYPERLIPIDAEMIA
     Dosage: 10-10 MG/PM PO
     Route: 048
     Dates: start: 20060210, end: 20060214
  2. DILTIAZEM HCL [Suspect]
     Indication: HYPERTENSION
     Dosage: 90 MG/AM PO
     Route: 048
     Dates: start: 20060210, end: 20060215
  3. INJ BLINDED THERAPY [Suspect]
     Indication: ACUTE CORONARY SYNDROME
     Dosage: SEE IMAGE
     Route: 042
     Dates: start: 20060209, end: 20060209
  4. INJ BLINDED THERAPY [Suspect]
     Indication: ACUTE CORONARY SYNDROME
     Dosage: SEE IMAGE
     Route: 042
     Dates: start: 20060209, end: 20060209
  5. INJ BLINDED THERAPY [Suspect]
     Indication: ACUTE CORONARY SYNDROME
     Dosage: SEE IMAGE
     Route: 042
     Dates: start: 20060209, end: 20060211
  6. ASPIRIN [Concomitant]
  7. CLOPIDOGREL BISULFATE [Concomitant]
  8. FUROSEMIDE [Concomitant]

REACTIONS (3)
  - CHEST DISCOMFORT [None]
  - PALPITATIONS [None]
  - VESTIBULAR NEURONITIS [None]
